FAERS Safety Report 23118561 (Version 2)
Quarter: 2023Q4

REPORT INFORMATION
  Report Type: Spontaneous
  Country: PK (occurrence: None)
  Receive Date: 20231028
  Receipt Date: 20231102
  Transmission Date: 20240110
  Serious: Yes (Life-Threatening, Other)
  Sender: FDA-Public Use
  Company Number: PK-ROCHE-3441147

PATIENT
  Age: 61 Year
  Sex: Male

DRUGS (3)
  1. ACTEMRA [Suspect]
     Active Substance: TOCILIZUMAB
     Indication: Rheumatoid arthritis
     Dosage: STRENGTH: 162MG/0/9ML, Q2W FOR 3 YEARS, THE PATIENT WAS ON AND OFF ON ACTEMRA SC TREATMENT
     Route: 058
  2. LOPRIL (FRANCE) [Concomitant]
  3. ASCARD [Concomitant]

REACTIONS (4)
  - Suspected counterfeit product [Unknown]
  - Drug ineffective [Unknown]
  - Rheumatoid factor increased [Recovered/Resolved]
  - Myocardial infarction [Unknown]
